FAERS Safety Report 5261474-X (Version None)
Quarter: 2007Q1

REPORT INFORMATION
  Report Type: 
  Country: None (occurrence: None)
  Receive Date: 20070307
  Receipt Date: 20070219
  Transmission Date: 20070707
  Serious: Yes (Hospitalization)
  Sender: FDA-Public Use
  Company Number: DSA_29463_2007

PATIENT
  Age: 63 Year
  Sex: Female
  Weight: 66 kg

DRUGS (10)
  1. LORAZEPAM [Suspect]
     Dosage: 0.5 MG ONCE PO
     Route: 048
     Dates: start: 20061221, end: 20061221
  2. LORAZEPAM [Suspect]
     Dosage: 0.5 MG BID PO
     Route: 048
     Dates: start: 20060706, end: 20061220
  3. LORAZEPAM [Suspect]
     Dosage: VAR Q DAY PO
     Route: 048
     Dates: start: 20060426, end: 20060705
  4. CLOZAPINE [Suspect]
     Dosage: 12.5 MG ONCE PO
     Route: 048
     Dates: start: 20061221, end: 20061221
  5. VALPROATE SODIUM [Suspect]
     Dosage: 2.5 G Q DAY PO
     Route: 048
     Dates: start: 20060607, end: 20070108
  6. VALPROATE SODIUM [Suspect]
     Dosage: VAR Q DAY PO
     Route: 048
     Dates: end: 20060606
  7. HALDOL SOLUTAB [Suspect]
     Dosage: 15 MG Q DAY PO
     Route: 048
     Dates: start: 20061220
  8. HALDOL SOLUTAB [Suspect]
     Dosage: 20 MG Q DAY PO
     Route: 048
     Dates: start: 20060419, end: 20061219
  9. HALDOL SOLUTAB [Suspect]
     Dosage: VAR NA PO
     Route: 048
     Dates: start: 20041101, end: 20060418
  10. GLUCOPHAGE [Concomitant]

REACTIONS (3)
  - DRUG INTERACTION [None]
  - OXYGEN SATURATION DECREASED [None]
  - SEDATION [None]
